FAERS Safety Report 19982062 (Version 1)
Quarter: 2021Q4

REPORT INFORMATION
  Report Type: Spontaneous
  Country: GB (occurrence: GB)
  Receive Date: 20211022
  Receipt Date: 20211022
  Transmission Date: 20220303
  Serious: Yes (Disabling, Other)
  Sender: FDA-Public Use
  Company Number: GB-NOVPHSZ-PHHY2019GB155758

PATIENT
  Sex: Male
  Weight: 63.53 kg

DRUGS (10)
  1. OMEPRAZOLE [Suspect]
     Active Substance: OMEPRAZOLE
     Indication: Gastrooesophageal reflux disease
     Dosage: 40 MILLIGRAM DAILY; OMEPRAZOLE 40 MG DAILY
     Route: 048
     Dates: start: 1992
  2. OMEPRAZOLE [Suspect]
     Active Substance: OMEPRAZOLE
     Indication: Gastrooesophageal reflux disease
     Dosage: 20 MILLIGRAM DAILY; 20 MILLIGRAM, QD (OMEPRAZOLE CHEMO IBERICA 20 MG ONCE DAILY)
     Route: 048
     Dates: start: 2002, end: 2017
  3. OMEPRAZOLE [Suspect]
     Active Substance: OMEPRAZOLE
     Indication: Gastrooesophageal reflux disease
     Dosage: 1 DOSAGE FORMS DAILY; DOSE NUMBER 1, QD
     Route: 065
  4. OMEPRAZOLE [Suspect]
     Active Substance: OMEPRAZOLE
     Indication: Gastrooesophageal reflux disease
     Dosage: 20 MILLIGRAM DAILY; 20 MILLIGRAM (OMEPRAZOLE CHEMO IBERICA 20 MG ONCE DAILY)
     Route: 048
     Dates: start: 2019
  5. ADCAL [Concomitant]
     Indication: Product used for unknown indication
     Dosage: 1 DOSAGE FORMS DAILY; 1 DOSAGE FORM, QD
     Dates: start: 201802
  6. ASPIRIN [Concomitant]
     Active Substance: ASPIRIN
     Indication: Cardiovascular event prophylaxis
     Dosage: 75 MILLIGRAM DAILY; ASPIRIN 75 MG DAILY
     Dates: start: 2001
  7. FOLIC ACID [Concomitant]
     Active Substance: FOLIC ACID
     Indication: Cardiovascular event prophylaxis
     Dosage: 800 MICROGRAM DAILY; FOLIC ACID 800 MCG DAILY
     Dates: start: 2004
  8. RISEDRONATE SODIUM [Concomitant]
     Active Substance: RISEDRONATE SODIUM
     Indication: Product used for unknown indication
     Dosage: RISEDRONIC ACID 35 MG WEEKLY, 35MG
     Dates: start: 201802
  9. ROPINIROLE [Concomitant]
     Active Substance: ROPINIROLE
     Indication: Periodic limb movement disorder
     Dosage: 6 MILLIGRAM DAILY; ROPINIROLE 2 MG TDS, 6MG
     Dates: start: 2002
  10. SIMVASTATIN [Concomitant]
     Active Substance: SIMVASTATIN
     Indication: Cardiovascular event prophylaxis
     Dosage: 40 MILLIGRAM DAILY; SIMVASTATIN 40 MG DAILY
     Dates: start: 2004

REACTIONS (9)
  - Vitamin B12 deficiency [Unknown]
  - Neuropathy peripheral [Not Recovered/Not Resolved]
  - Osteoporosis [Not Recovered/Not Resolved]
  - Spinal compression fracture [Unknown]
  - Incorrect product administration duration [Unknown]
  - Restless legs syndrome [Not Recovered/Not Resolved]
  - Malabsorption [Not Recovered/Not Resolved]
  - Fall [Unknown]
  - Ulna fracture [Unknown]

NARRATIVE: CASE EVENT DATE: 19920101
